FAERS Safety Report 10665227 (Version 3)
Quarter: 2015Q2

REPORT INFORMATION
  Report Type: Spontaneous
  Country: US (occurrence: US)
  Receive Date: 20141219
  Receipt Date: 20150611
  Transmission Date: 20150821
  Serious: No
  Sender: FDA-Public Use
  Company Number: US-PFIZER INC-2014348930

PATIENT
  Age: 48 Year
  Sex: Female
  Weight: 73 kg

DRUGS (16)
  1. VITAMIN C [Concomitant]
     Active Substance: ASCORBIC ACID
     Dosage: 1X/DAY
     Route: 048
  2. METHOTREXATE [Concomitant]
     Active Substance: METHOTREXATE
     Dosage: 17.5 MG, WEEKLY
     Route: 048
  3. MYRBETRIQ ER [Concomitant]
     Dosage: 50 MG, 1X/DAY
     Route: 048
  4. CHONDROITIN/GLUCOSAMINE [Concomitant]
     Dosage: 2 DF, 1X/DAY
     Route: 048
  5. DULOXETINE [Concomitant]
     Active Substance: DULOXETINE
     Dosage: 60 MG, 2X/DAY
     Route: 048
  6. FOLIC ACID. [Concomitant]
     Active Substance: FOLIC ACID
     Dosage: 1 MG, 1X/DAY
     Route: 048
  7. LEVOTHYROXINE [Concomitant]
     Active Substance: LEVOTHYROXINE
     Dosage: 137MCG, 1X/DAY
     Route: 048
  8. OMEPRAZOLE. [Concomitant]
     Active Substance: OMEPRAZOLE
     Dosage: UNK, 1X/DAY
     Route: 048
  9. GABAPENTIN. [Concomitant]
     Active Substance: GABAPENTIN
     Dosage: 600 MG, 3X/DAY
     Route: 048
  10. TOPIRAMATE. [Concomitant]
     Active Substance: TOPIRAMATE
     Dosage: 50 MG, 4X/DAY
     Route: 048
  11. XELJANZ [Suspect]
     Active Substance: TOFACITINIB CITRATE
     Indication: ARTHRITIS
     Dosage: UNK
  12. ACIDOPHILUS [Concomitant]
     Active Substance: LACTOBACILLUS ACIDOPHILUS
     Dosage: 2 DF, 1X/DAY
     Route: 048
  13. XELJANZ [Suspect]
     Active Substance: TOFACITINIB CITRATE
     Indication: RHEUMATOID ARTHRITIS
     Dosage: 5 MG, 2X/DAY
     Route: 048
     Dates: start: 201410
  14. OXYCODONE [Concomitant]
     Active Substance: OXYCODONE
     Dosage: 5-325MG,3-4 A DAY
     Route: 048
  15. ZINC [Concomitant]
     Active Substance: ZINC\ZINC CHLORIDE
     Dosage: 1 DF
     Route: 048
  16. FISH OIL [Concomitant]
     Active Substance: FISH OIL
     Dosage: 2 DF, 1X/DAY
     Route: 048

REACTIONS (1)
  - Hair growth abnormal [Not Recovered/Not Resolved]

NARRATIVE: CASE EVENT DATE: 2014
